FAERS Safety Report 13581877 (Version 1)
Quarter: 2017Q2

REPORT INFORMATION
  Report Type: Spontaneous
  Country: IE (occurrence: IE)
  Receive Date: 20170525
  Receipt Date: 20170525
  Transmission Date: 20170830
  Serious: Yes (Other)
  Sender: FDA-Public Use
  Company Number: IE-ELI_LILLY_AND_COMPANY-IE201705005796

PATIENT
  Age: 73 Year
  Sex: Female

DRUGS (1)
  1. TRULICITY [Suspect]
     Active Substance: DULAGLUTIDE
     Indication: PRODUCT USED FOR UNKNOWN INDICATION
     Dosage: 0.75 MG, UNKNOWN
     Route: 065

REACTIONS (4)
  - Abdominal pain [Unknown]
  - Colitis ulcerative [Unknown]
  - Palmar erythema [Unknown]
  - Dyspepsia [Unknown]

NARRATIVE: CASE EVENT DATE: 20170425
